FAERS Safety Report 8159173-X (Version None)
Quarter: 2012Q1

REPORT INFORMATION
  Report Type: 
  Country: None (occurrence: None)
  Receive Date: 20120223
  Receipt Date: 20120214
  Transmission Date: 20120608
  Serious: Yes (Hospitalization)
  Sender: FDA-Public Use
  Company Number: US-JNJFOC-20120205334

PATIENT
  Sex: Female
  Weight: 35.7 kg

DRUGS (25)
  1. AMITRIPTYLINE HCL [Concomitant]
  2. ASCORBIC ACID [Concomitant]
     Route: 050
  3. CALCIUM [Concomitant]
  4. CHOLECALCIFEROL [Concomitant]
     Route: 050
  5. TOPICAL PREPARATIONS [Concomitant]
     Route: 061
  6. CIMZIA [Concomitant]
     Dates: start: 20100514
  7. TACROLIMUS [Concomitant]
  8. LANSOPRAZOLE [Concomitant]
  9. ACETAMINOPHEN [Concomitant]
  10. PREDNISONE [Concomitant]
  11. MAGNESIUM OXIDE [Concomitant]
  12. MULTI-VITAMINS [Concomitant]
  13. REMICADE [Suspect]
     Indication: INFLAMMATORY BOWEL DISEASE
     Route: 042
     Dates: start: 20070802, end: 20080709
  14. TRAMADOL HCL [Concomitant]
  15. FERROUS SULFATE TAB [Concomitant]
  16. VITAMIN D [Concomitant]
  17. CITALOPRAM HYDROBROMIDE [Concomitant]
  18. DOCUSATE SODIUM [Concomitant]
  19. FLUCONAZOLE [Concomitant]
  20. MERCAPTOPURINE [Concomitant]
  21. TRIAMCINOLONE [Concomitant]
  22. OXYCODONE HCL [Concomitant]
  23. CYPROHEPTADINE HCL [Concomitant]
  24. ANTIBIOTICS [Concomitant]
     Indication: INFLAMMATORY BOWEL DISEASE
  25. HYDROCORTISONE [Concomitant]

REACTIONS (1)
  - CELLULITIS [None]
